FAERS Safety Report 6844653-7 (Version None)
Quarter: 2010Q3

REPORT INFORMATION
  Report Type: 
  Country: None (occurrence: None)
  Receive Date: 20100715
  Receipt Date: 20100707
  Transmission Date: 20110219
  Serious: Yes (Hospitalization)
  Sender: FDA-Public Use
  Company Number: US-GENENTECH-303970

PATIENT
  Sex: Female
  Weight: 59.1 kg

DRUGS (5)
  1. RITUXAN [Suspect]
     Indication: NEUROMYELITIS OPTICA
     Dosage: UNK
     Route: 042
     Dates: start: 20090317, end: 20100407
  2. GABAPENTIN [Concomitant]
     Indication: PRODUCT USED FOR UNKNOWN INDICATION
  3. MACROBID [Concomitant]
     Indication: PRODUCT USED FOR UNKNOWN INDICATION
  4. ATIVAN [Concomitant]
     Indication: PRODUCT USED FOR UNKNOWN INDICATION
  5. ANTIHYPERTENSIVE [Concomitant]
     Indication: BLOOD PRESSURE INCREASED

REACTIONS (2)
  - PARALYSIS [None]
  - URINARY TRACT INFECTION [None]
